FAERS Safety Report 13964910 (Version 3)
Quarter: 2018Q1

REPORT INFORMATION
  Report Type: Spontaneous
  Country: US (occurrence: US)
  Receive Date: 20170913
  Receipt Date: 20180117
  Transmission Date: 20180508
  Serious: No
  Sender: FDA-Public Use
  Company Number: US-JNJFOC-20170705633

PATIENT
  Sex: Male

DRUGS (15)
  1. ZYTIGA [Suspect]
     Active Substance: ABIRATERONE ACETATE
     Indication: PROSTATE CANCER METASTATIC
     Route: 048
  2. HYDROCODONE [Concomitant]
     Active Substance: HYDROCODONE
     Route: 048
  3. GLUCOSAMINE + CHONDROITIN [Concomitant]
     Active Substance: CHONDROITIN SULFATE (BOVINE)\GLUCOSAMINE HYDROCHLORIDE
     Dosage: 1 1/2 TAB DAILY, TUESDAY 1 DAILY
     Route: 065
  4. ZYTIGA [Suspect]
     Active Substance: ABIRATERONE ACETATE
     Indication: PROSTATE CANCER METASTATIC
     Route: 048
  5. ZYTIGA [Suspect]
     Active Substance: ABIRATERONE ACETATE
     Indication: PROSTATE CANCER METASTATIC
     Route: 048
  6. PRILOSEC [Concomitant]
     Active Substance: OMEPRAZOLE MAGNESIUM
     Route: 048
  7. PRESERVISION [Concomitant]
     Active Substance: MINERALS\VITAMINS
     Dosage: 1 1/2 TAB DAILY, TUESDAY 1 DAILY
     Route: 065
  8. TYLENOL ARTHRITIS PAIN [Concomitant]
     Active Substance: ACETAMINOPHEN
     Dosage: 1 1/2 TAB DAILY, TUESDAY 1 DAILY
     Route: 065
  9. WARFARIN SODIUM. [Concomitant]
     Active Substance: WARFARIN SODIUM
     Dosage: 1 1/2 TAB DAILY, TUESDAY 1 DAILY
     Route: 065
  10. CYANOCOBALAMIN. [Concomitant]
     Active Substance: CYANOCOBALAMIN
     Dosage: 1 1/2 TAB DAILY, TUESDAY 1 DAILY
     Route: 065
  11. FOSAMAX [Concomitant]
     Active Substance: ALENDRONATE SODIUM
     Route: 048
  12. NADOLOL. [Concomitant]
     Active Substance: NADOLOL
     Route: 048
  13. CALCIUM CARBONATE AND VITAMIN D [Concomitant]
     Active Substance: CALCIUM CARBONATE\VITAMIN D
     Dosage: 1 1/2 TAB DAILY, TUESDAY 1 DAILY
     Route: 065
  14. LUPRON [Concomitant]
     Active Substance: LEUPROLIDE ACETATE
     Dosage: 1 1/2 TAB DAILY, TUESDAY 1 DAILY
     Route: 065
  15. TAMSULOSIN HCL [Concomitant]
     Active Substance: TAMSULOSIN HYDROCHLORIDE
     Route: 048

REACTIONS (8)
  - Dry skin [Unknown]
  - Constipation [Unknown]
  - Gait disturbance [Unknown]
  - Muscular weakness [Unknown]
  - Balance disorder [Unknown]
  - Impaired work ability [Unknown]
  - Dry eye [Unknown]
  - Libido disorder [Unknown]
